FAERS Safety Report 13294399 (Version 4)
Quarter: 2018Q3

REPORT INFORMATION
  Report Type: Report from Study
  Country: None (occurrence: US)
  Receive Date: 20170303
  Receipt Date: 20180706
  Transmission Date: 20181010
  Serious: Yes (Hospitalization, Other)
  Sender: FDA-Public Use
  Company Number: US-ABBVIE-17K-163-1889976-00

PATIENT
  Sex: Male

DRUGS (6)
  1. VICOPROFEN [Concomitant]
     Active Substance: HYDROCODONE BITARTRATE\IBUPROFEN
     Indication: ANKYLOSING SPONDYLITIS
  2. BENICAR AMLO [Concomitant]
     Active Substance: AMLODIPINE BESYLATE\OLMESARTAN MEDOXOMIL
     Indication: HYPERTENSION
  3. HUMIRA [Suspect]
     Active Substance: ADALIMUMAB
     Indication: ANKYLOSING SPONDYLITIS
     Route: 058
     Dates: start: 2013
  4. TYLENOL [Suspect]
     Active Substance: ACETAMINOPHEN
     Indication: PRODUCT USED FOR UNKNOWN INDICATION
     Route: 065
  5. FLOMAX [Concomitant]
     Active Substance: TAMSULOSIN HYDROCHLORIDE
     Indication: BENIGN PROSTATIC HYPERPLASIA
  6. AMLODIPINE/BENECA [Concomitant]
     Indication: HYPERTENSION

REACTIONS (16)
  - Bacterial infection [Recovered/Resolved]
  - Headache [Unknown]
  - Tremor [Unknown]
  - Injection site haemorrhage [Recovered/Resolved]
  - Irritability [Unknown]
  - Peripheral nerve injury [Unknown]
  - Uveitis [Unknown]
  - Weight increased [Unknown]
  - Urinary tract infection bacterial [Unknown]
  - Bacterial infection [Not Recovered/Not Resolved]
  - Chest discomfort [Unknown]
  - Blood glucose increased [Unknown]
  - Hyperhidrosis [Unknown]
  - Gastrointestinal bacterial infection [Unknown]
  - Mobility decreased [Recovered/Resolved]
  - Influenza [Unknown]

NARRATIVE: CASE EVENT DATE: 2015
